FAERS Safety Report 4315639-1 (Version None)
Quarter: 2004Q1

REPORT INFORMATION
  Report Type: 
  Country: None (occurrence: None)
  Receive Date: 20040311
  Receipt Date: 20040228
  Transmission Date: 20041129
  Serious: Yes (Death, Hospitalization)
  Sender: FDA-Public Use
  Company Number: GH-GLAXOSMITHKLINE-B0325461A

PATIENT
  Age: 14 Year
  Sex: Female

DRUGS (2)
  1. ALBENDAZOLE [Suspect]
     Route: 065
  2. IVERMECTIN [Suspect]

REACTIONS (3)
  - DEATH [None]
  - RASH [None]
  - ULCER [None]
